FAERS Safety Report 25235249 (Version 2)
Quarter: 2025Q3

REPORT INFORMATION
  Report Type: Report from Study
  Country: ZA (occurrence: ZA)
  Receive Date: 20250424
  Receipt Date: 20250810
  Transmission Date: 20251020
  Serious: Yes (Hospitalization, Other)
  Sender: ALEXION PHARMACEUTICALS
  Company Number: ZA-AstraZeneca-CH-00851481A

PATIENT
  Age: 79 Year
  Sex: Male

DRUGS (5)
  1. BUDESONIDE\FORMOTEROL [Suspect]
     Active Substance: BUDESONIDE\FORMOTEROL
     Indication: Asthma
  2. DAPAGLIFLOZIN PROPANEDIOL [Suspect]
     Active Substance: DAPAGLIFLOZIN PROPANEDIOL
     Indication: Diabetes mellitus
  3. ISMO [Concomitant]
     Active Substance: ISOSORBIDE MONONITRATE
     Indication: Angina pectoris
  4. Pantocid [Concomitant]
     Indication: Ulcer
  5. CLOPIDOGREL BISULFATE [Concomitant]
     Active Substance: CLOPIDOGREL BISULFATE
     Indication: Coagulopathy

REACTIONS (5)
  - Myocardial infarction [Unknown]
  - Pericardial effusion [Unknown]
  - Anticoagulant therapy [Unknown]
  - Leg amputation [Unknown]
  - Cerebrovascular accident [Unknown]
